FAERS Safety Report 23135009 (Version 2)
Quarter: 2023Q4

REPORT INFORMATION
  Report Type: Report from Study
  Country: US (occurrence: None)
  Receive Date: 20231101
  Receipt Date: 20231211
  Transmission Date: 20240110
  Serious: Yes (Other)
  Sender: FDA-Public Use
  Company Number: 2023A242219

PATIENT
  Sex: Male
  Weight: 86 kg

DRUGS (1)
  1. CALQUENCE [Suspect]
     Active Substance: ACALABRUTINIB
     Indication: B-cell lymphoma
     Route: 048
     Dates: start: 20230311

REACTIONS (5)
  - Cardiac failure congestive [Recovering/Resolving]
  - Ascites [Recovering/Resolving]
  - Pericardial effusion [Recovering/Resolving]
  - Pyrexia [Recovering/Resolving]
  - Pleural effusion [Recovering/Resolving]
